FAERS Safety Report 13029797 (Version 1)
Quarter: 2016Q4

REPORT INFORMATION
  Report Type: Spontaneous
  Country: US (occurrence: US)
  Receive Date: 20161214
  Receipt Date: 20161214
  Transmission Date: 20170207
  Serious: Yes (Other)
  Sender: FDA-Public Use
  Company Number: None

PATIENT
  Age: 42 Year
  Sex: Male
  Weight: 90 kg

DRUGS (3)
  1. MARIJUANA [Concomitant]
     Active Substance: CANNABIS SATIVA SUBSP. INDICA TOP
  2. GABAPENTIN. [Suspect]
     Active Substance: GABAPENTIN
     Indication: NERVE INJURY
     Dosage: ?          QUANTITY:90 CAPSULE(S);?
     Route: 048
  3. CALCIUM ACETATE. [Concomitant]
     Active Substance: CALCIUM ACETATE

REACTIONS (9)
  - Myalgia [None]
  - Marital problem [None]
  - Pain [None]
  - Aggression [None]
  - Nightmare [None]
  - Weight increased [None]
  - Depression [None]
  - Mood swings [None]
  - Suicidal ideation [None]

NARRATIVE: CASE EVENT DATE: 20161020
